FAERS Safety Report 5679117-X (Version None)
Quarter: 2008Q1

REPORT INFORMATION
  Report Type: 
  Country: None (occurrence: None)
  Receive Date: 20080321
  Receipt Date: 20080314
  Transmission Date: 20080703
  Serious: Yes (Hospitalization)
  Sender: FDA-Public Use
  Company Number: 2008BI002829

PATIENT
  Age: 51 Year
  Sex: Male
  Weight: 92.0802 kg

DRUGS (1)
  1. TYSABRI [Suspect]
     Indication: MULTIPLE SCLEROSIS
     Dosage: 300 MG;QM;IV
     Route: 042
     Dates: start: 20071112

REACTIONS (5)
  - CHILLS [None]
  - FLUSHING [None]
  - INFECTION [None]
  - INFUSION RELATED REACTION [None]
  - THROMBOSIS [None]
